FAERS Safety Report 8071311 (Version 7)
Quarter: 2013Q2

REPORT INFORMATION
  Report Type: Report from Study
  Country: CZ (occurrence: CZ)
  Receive Date: 20110805
  Receipt Date: 20130627
  Transmission Date: 20140414
  Serious: Yes (Death, Hospitalization, Other)
  Sender: FDA-Public Use
  Company Number: CZ-CELGENEUS-217-21880-11071307

PATIENT
  Age: 78 Year
  Sex: Female
  Weight: 64 kg

DRUGS (25)
  1. REVLIMID [Suspect]
     Indication: PLASMA CELL MYELOMA RECURRENT
     Dosage: 25 MILLIGRAM
     Route: 048
     Dates: start: 20110418, end: 20110508
  2. REVLIMID [Suspect]
     Dosage: 25 MILLIGRAM
     Route: 048
     Dates: start: 20110516, end: 20110528
  3. REVLIMID [Suspect]
     Dosage: 15 MILLIGRAM
     Route: 048
     Dates: start: 20110627, end: 20110710
  4. FORTECORTIN [Suspect]
     Indication: PLASMA CELL MYELOMA RECURRENT
     Route: 048
     Dates: start: 20110418, end: 20110509
  5. FORTECORTIN [Suspect]
     Route: 048
     Dates: start: 20110516, end: 20110606
  6. FORTECORTIN [Suspect]
     Route: 048
     Dates: start: 20110627, end: 20110711
  7. THALIDOMIDE [Suspect]
     Indication: PLASMA CELL MYELOMA
     Dosage: NOT PROVIDED
     Route: 048
     Dates: start: 20090618, end: 20100126
  8. HERPESIN [Concomitant]
     Indication: ANTIVIRAL PROPHYLAXIS
     Dosage: 400 MILLIGRAM
     Route: 065
     Dates: start: 20110417, end: 20110711
  9. ZINNAT [Concomitant]
     Indication: INFECTION
     Dosage: 1000 MILLIGRAM
     Route: 048
     Dates: start: 20110623, end: 20110627
  10. NUTRIDRINK [Concomitant]
     Indication: DECREASED APPETITE
     Route: 048
     Dates: start: 20110613
  11. NUTRIDRINK [Concomitant]
     Indication: DECREASED APPETITE
     Dosage: 200 MILLILITER
     Route: 048
     Dates: start: 20110711, end: 20110719
  12. ANOPYRIN [Concomitant]
     Indication: ANTICOAGULANT THERAPY
     Dosage: 100 MILLIGRAM
     Route: 048
     Dates: start: 20110417
  13. AUGMENTIN [Concomitant]
     Indication: MUCOSAL INFLAMMATION
     Route: 048
     Dates: start: 20110530, end: 20110612
  14. AUGMENTIN [Concomitant]
     Indication: FEBRILE NEUTROPENIA
     Dosage: 3.6 GRAM
     Route: 041
     Dates: start: 20110711, end: 20110712
  15. BONDRONAT [Concomitant]
     Indication: BONE DISORDER
     Dosage: 50 MILLIGRAM
     Route: 048
     Dates: start: 20091001, end: 20110711
  16. CALCIUM [Concomitant]
     Indication: OSTEOPOROSIS
     Dosage: 1000 MILLIGRAM
     Route: 048
     Dates: start: 200510
  17. CIPROFLOXACIN [Concomitant]
     Indication: ANTIBIOTIC PROPHYLAXIS
     Dosage: 500 MILLIGRAM
     Route: 048
     Dates: start: 20110417, end: 20110711
  18. LANSOPROL [Concomitant]
     Indication: PROPHYLAXIS AGAINST GASTROINTESTINAL ULCER
     Dosage: 15 MILLIGRAM
     Route: 048
     Dates: start: 20090617, end: 20110711
  19. MICARDIS PLUS 80 [Concomitant]
     Indication: HYPERTENSION
     Route: 048
  20. PALLADONE SR [Concomitant]
     Indication: BACK PAIN
     Dosage: 4 MILLIGRAM
     Route: 048
     Dates: start: 20101213
  21. TIMOLOL [Concomitant]
     Indication: GLAUCOMA
     Dosage: 1 DROPS
     Route: 047
  22. VITAMIN AD [Concomitant]
     Indication: OSTEOPOROSIS
     Dosage: 1 GUTTA
     Route: 048
     Dates: start: 200510
  23. XALATAN [Concomitant]
     Indication: GLAUCOMA
     Dosage: 1 DROPS
     Route: 047
  24. NEURONTIN [Concomitant]
     Indication: NEUROPATHY PERIPHERAL
     Dosage: 300 MILLIGRAM
     Route: 048
     Dates: start: 20101004, end: 20110505
  25. FRAGMIN [Concomitant]
     Indication: ANTICOAGULANT THERAPY
     Dosage: 5000 J
     Route: 058
     Dates: start: 20110509, end: 20110724

REACTIONS (3)
  - Gastrointestinal stromal tumour [Not Recovered/Not Resolved]
  - Febrile neutropenia [Recovered/Resolved]
  - Cardiac failure [Fatal]
